FAERS Safety Report 8024083-5 (Version None)
Quarter: 2011Q4

REPORT INFORMATION
  Report Type: 
  Country: None (occurrence: None)
  Receive Date: 20111130
  Receipt Date: 20101021
  Transmission Date: 20120403
  Serious: Yes (Other)
  Sender: FDA-Public Use
  Company Number: 316838

PATIENT
  Age: 51 Year
  Sex: Male
  Weight: 107 kg

DRUGS (10)
  1. METFORMIN HCL [Concomitant]
  2. GLIMEPIRIDE [Concomitant]
  3. LEVEMIR [Suspect]
     Indication: TYPE 2 DIABETES MELLITUS
     Dates: start: 20080101
  4. PLAVIX [Concomitant]
  5. PRAVASTATIN [Concomitant]
  6. XANAX [Concomitant]
  7. NOVOLOG [Suspect]
     Indication: TYPE 2 DIABETES MELLITUS
     Dates: start: 20080101
  8. FISH OIL (FISH OIL) [Concomitant]
  9. ASPIRIN [Concomitant]
  10. ENALAPRIL MALEATE [Concomitant]

REACTIONS (2)
  - BLOOD GLUCOSE INCREASED [None]
  - DEHYDRATION [None]
